FAERS Safety Report 20470344 (Version 1)
Quarter: 2022Q1

REPORT INFORMATION
  Report Type: Spontaneous
  Country: GB (occurrence: GB)
  Receive Date: 20220214
  Receipt Date: 20220214
  Transmission Date: 20220423
  Serious: Yes (Other)
  Sender: FDA-Public Use
  Company Number: GB-PFIZER INC-202200181923

PATIENT
  Age: 77 Year
  Sex: Female

DRUGS (1)
  1. TRANEXAMIC ACID [Suspect]
     Active Substance: TRANEXAMIC ACID
     Indication: Haematuria
     Dosage: 1 G, 3X/DAY (FOR 5 DAYS)
     Route: 048

REACTIONS (3)
  - Ureteric perforation [Recovered/Resolved]
  - Extravasation of urine [Recovered/Resolved]
  - Ureteric obstruction [Recovered/Resolved]
